FAERS Safety Report 4718835-4 (Version None)
Quarter: 2005Q3

REPORT INFORMATION
  Report Type: 
  Country: None (occurrence: None)
  Receive Date: 20050719
  Receipt Date: 20050527
  Transmission Date: 20060218
  Serious: Yes (Death)
  Sender: FDA-Public Use
  Company Number: AZAUS200500167

PATIENT
  Age: 71 Year
  Sex: Male

DRUGS (12)
  1. AZACITIDINE (AZACITIDINE) (INJECTION) [Suspect]
     Indication: MYELODYSPLASTIC SYNDROME
     Dosage: 75 MG./M2 (148 MG, DAILY X 7 DAYS), SUBCUTANEOUS
     Route: 058
  2. CITALOPRAM (CITALOPRAM) [Concomitant]
  3. LEVOFLOXACIN [Concomitant]
  4. METRONIDAZOLE [Concomitant]
  5. DOCUSATE SODIUM (DOCUSATE SODIUM) [Concomitant]
  6. SENNA (SENNA) [Concomitant]
  7. METHYLPREDNISOLONE [Concomitant]
  8. EPOETIN ALFA (EPOETIN ALFA) [Concomitant]
  9. ESOMEPRAZOLE (ESOMEPRAZOLE) [Concomitant]
  10. LORAZEPAM [Concomitant]
  11. OXAZEPAM [Concomitant]
  12. OXYCODONE (OXYCODONE) [Concomitant]

REACTIONS (8)
  - INTERSTITIAL LUNG DISEASE [None]
  - PNEUMONITIS [None]
  - PULMONARY FIBROSIS [None]
  - PULMONARY NECROSIS [None]
  - RASH [None]
  - RASH FOLLICULAR [None]
  - RASH PUSTULAR [None]
  - RESPIRATORY FAILURE [None]
